FAERS Safety Report 9500398 (Version 1)
Quarter: 2013Q3

REPORT INFORMATION
  Report Type: Spontaneous
  Country: IT (occurrence: IT)
  Receive Date: 20130905
  Receipt Date: 20130905
  Transmission Date: 20140515
  Serious: Yes (Other)
  Sender: FDA-Public Use
  Company Number: IT-MYLANLABS-2013S1019030

PATIENT
  Age: 64 Year
  Sex: Male

DRUGS (11)
  1. FUROSEMIDE [Suspect]
     Indication: PRODUCT USED FOR UNKNOWN INDICATION
     Route: 048
     Dates: start: 20130606, end: 20130617
  2. TAVOR [Suspect]
     Indication: PRODUCT USED FOR UNKNOWN INDICATION
     Route: 048
     Dates: start: 20130716, end: 20130717
  3. HUMALOG NPL [Concomitant]
     Indication: DIABETES MELLITUS
     Dosage: DOSE UNIT:100
     Route: 058
  4. ESKIM [Concomitant]
     Indication: PRODUCT USED FOR UNKNOWN INDICATION
     Dosage: DOSE UNIT:1000 UNKNOWN
  5. CARDURA [Concomitant]
     Indication: HYPERTENSION
  6. DILZENE [Concomitant]
     Indication: PRODUCT USED FOR UNKNOWN INDICATION
  7. CALCITRIOL [Concomitant]
     Indication: PRODUCT USED FOR UNKNOWN INDICATION
  8. CATAPRESS TTS [Concomitant]
     Indication: HYPERTENSION
     Route: 062
  9. INSULIN LISPRO [Concomitant]
     Indication: DIABETES MELLITUS
  10. ALLOPURINOL [Concomitant]
     Indication: PRODUCT USED FOR UNKNOWN INDICATION
  11. HALOPERIDOL [Concomitant]
     Indication: PRODUCT USED FOR UNKNOWN INDICATION

REACTIONS (3)
  - Hypokalaemia [Recovering/Resolving]
  - Sopor [Recovering/Resolving]
  - Overdose [Unknown]
